FAERS Safety Report 5972155-9 (Version None)
Quarter: 2008Q4

REPORT INFORMATION
  Report Type: 
  Country: None (occurrence: None)
  Receive Date: 20081201
  Receipt Date: 20080806
  Transmission Date: 20090506
  Serious: No
  Sender: FDA-Public Use
  Company Number: US-TEVA-176186USA

PATIENT
  Sex: Male

DRUGS (6)
  1. SALBUTAMOL SULFATE INHALATION, 0.09 MG [Suspect]
     Indication: CHRONIC OBSTRUCTIVE PULMONARY DISEASE
     Dosage: 2 PUFFS
     Route: 055
  2. DIAZEPAM [Concomitant]
     Dosage: PRN
  3. VICODIN [Concomitant]
     Dosage: 1/2
  4. GEMFIBROZIL [Concomitant]
  5. SULMA [Concomitant]
     Indication: BACK INJURY
  6. FLUXITINE [Concomitant]

REACTIONS (2)
  - INSOMNIA [None]
  - PSYCHOMOTOR HYPERACTIVITY [None]
